FAERS Safety Report 7492785-5 (Version None)
Quarter: 2011Q2

REPORT INFORMATION
  Report Type: 
  Country: None (occurrence: None)
  Receive Date: 20110519
  Receipt Date: 20110516
  Transmission Date: 20111010
  Serious: Yes (Hospitalization, Other)
  Sender: FDA-Public Use
  Company Number: US-AMGEN-USASP2010005881

PATIENT
  Age: 53 Year
  Sex: Female

DRUGS (2)
  1. NPLATE [Suspect]
     Indication: IDIOPATHIC THROMBOCYTOPENIC PURPURA
     Dosage: 1 A?G/KG, UNK
     Dates: start: 20100917, end: 20110222
  2. CORTICOSTEROIDS [Concomitant]

REACTIONS (5)
  - GENERALISED OEDEMA [None]
  - THROMBOCYTOPENIA [None]
  - HEPATIC FAILURE [None]
  - CARDIAC FAILURE CONGESTIVE [None]
  - SEPSIS [None]
